FAERS Safety Report 4747996-6 (Version None)
Quarter: 2005Q3

REPORT INFORMATION
  Report Type: 
  Country: None (occurrence: None)
  Receive Date: 20050818
  Receipt Date: 20050808
  Transmission Date: 20060218
  Serious: Yes (Other)
  Sender: FDA-Public Use
  Company Number: US-BRISTOL-MYERS SQUIBB COMPANY-13066303

PATIENT
  Age: 59 Year
  Sex: Female

DRUGS (3)
  1. COUMADIN [Suspect]
     Indication: CARDIAC OPERATION
     Route: 048
     Dates: start: 20050621
  2. PREMARIN [Concomitant]
  3. MULTI-VITAMIN [Concomitant]

REACTIONS (4)
  - CORNEAL ABRASION [None]
  - EYE SWELLING [None]
  - SWELLING FACE [None]
  - ULCERATIVE KERATITIS [None]
